FAERS Safety Report 13584697 (Version 1)
Quarter: 2017Q2

REPORT INFORMATION
  Report Type: Spontaneous
  Country: US (occurrence: US)
  Receive Date: 20170525
  Receipt Date: 20170525
  Transmission Date: 20170830
  Serious: No
  Sender: FDA-Public Use
  Company Number: None

PATIENT
  Age: 56 Year
  Sex: Female

DRUGS (1)
  1. IBRANCE [Suspect]
     Active Substance: PALBOCICLIB
     Indication: BREAST CANCER FEMALE
     Dosage: 100MG TAKE ONCE CAPSULE (100 MG) BY MOUTH
     Route: 048
     Dates: start: 20170407, end: 20170428

REACTIONS (1)
  - Red blood cell count decreased [None]

NARRATIVE: CASE EVENT DATE: 20170524
